FAERS Safety Report 18705408 (Version 1)
Quarter: 2021Q1

REPORT INFORMATION
  Report Type: Other
  Country: PT (occurrence: PT)
  Receive Date: 20210106
  Receipt Date: 20210106
  Transmission Date: 20210419
  Serious: Yes (Other)
  Sender: FDA-Public Use
  Company Number: PT-ROCHE-2743969

PATIENT

DRUGS (1)
  1. RITUXIMAB. [Suspect]
     Active Substance: RITUXIMAB
     Indication: BURKITT^S LYMPHOMA STAGE IV
     Dosage: CYCLIC (DOSE 5)
     Route: 065

REACTIONS (8)
  - Mucosal inflammation [Unknown]
  - Herpes zoster [Unknown]
  - Febrile infection [Unknown]
  - Tonsillitis [Unknown]
  - Respiratory tract infection [Unknown]
  - Pneumonitis [Unknown]
  - Febrile neutropenia [Unknown]
  - Bacteraemia [Unknown]
